FAERS Safety Report 5921848-8 (Version None)
Quarter: 2008Q4

REPORT INFORMATION
  Report Type: 
  Country: None (occurrence: None)
  Receive Date: 20081017
  Receipt Date: 20070510
  Transmission Date: 20090506
  Serious: No
  Sender: FDA-Public Use
  Company Number: US-PFIZER INC-2007038671

PATIENT
  Age: 49 Year
  Sex: Female

DRUGS (6)
  1. CHANTIX [Suspect]
     Indication: SMOKING CESSATION THERAPY
  2. LEXAPRO [Suspect]
     Indication: DEPRESSION
  3. LASIX [Concomitant]
  4. ADVAIR DISKUS 100/50 [Concomitant]
  5. DUONEB [Concomitant]
  6. ALBUTEROL [Concomitant]

REACTIONS (1)
  - NO ADVERSE EVENT [None]
